FAERS Safety Report 7445305-5 (Version None)
Quarter: 2011Q2

REPORT INFORMATION
  Report Type: 
  Country: None (occurrence: None)
  Receive Date: 20110420
  Receipt Date: 20110407
  Transmission Date: 20111010
  Serious: Yes (Hospitalization)
  Sender: FDA-Public Use
  Company Number: 1000019786

PATIENT
  Age: 26 Year
  Sex: Female

DRUGS (5)
  1. OXEPAM (OXAZEPAM)(OXAZEPAM) [Concomitant]
  2. PROMETHAZINE (PROMETHAZINE) (PROMETHAZINE) [Concomitant]
  3. TRYPTOPHAN (TRYPTOPHAN, L-)(TRYPTOPHAN, L-) [Concomitant]
  4. CITALOPRAM HYDROBROMIDE [Suspect]
     Indication: ANXIETY
     Dosage: 10 MG (10 MG, 1 IN 1 D),ORAL
     Route: 048
     Dates: start: 20110106, end: 20110210
  5. CITALOPRAM HYDROBROMIDE [Suspect]
     Indication: ANXIETY
     Dosage: 10 MG (10 MG, 1 IN 1 D), ORAL
     Route: 048
     Dates: start: 20110228

REACTIONS (8)
  - ANXIETY [None]
  - CONDITION AGGRAVATED [None]
  - PAIN [None]
  - PARAESTHESIA [None]
  - MALAISE [None]
  - SINUSITIS [None]
  - INSOMNIA [None]
  - FATIGUE [None]
